FAERS Safety Report 10098330 (Version 1)
Quarter: 2014Q2

REPORT INFORMATION
  Report Type: Spontaneous
  Country: US (occurrence: None)
  Receive Date: 20140422
  Receipt Date: 20140422
  Transmission Date: 20141212
  Serious: No
  Sender: FDA-Public Use
  Company Number: None

PATIENT
  Age: 12 Year
  Sex: Female
  Weight: 49.8 kg

DRUGS (3)
  1. DAUNORUBICIN [Suspect]
     Dates: end: 20140411
  2. PEG-L-ASPARAGINASE [Suspect]
     Dosage: 3800 IU
     Dates: end: 20140330
  3. VINCRISTINE SULFATE [Suspect]
     Dates: end: 20140410

REACTIONS (3)
  - Jaundice [None]
  - Hepatomegaly [None]
  - Alanine aminotransferase increased [None]
